FAERS Safety Report 17797267 (Version 1)
Quarter: 2020Q2

REPORT INFORMATION
  Report Type: Spontaneous
  Country: US (occurrence: US)
  Receive Date: 20200517
  Receipt Date: 20200517
  Transmission Date: 20200714
  Serious: Yes (Other)
  Sender: FDA-Public Use
  Company Number: None

PATIENT
  Age: 41 Year
  Sex: Female
  Weight: 128 kg

DRUGS (4)
  1. REMDESIVIR. [Suspect]
     Active Substance: REMDESIVIR
     Indication: COVID-19 PNEUMONIA
     Dates: start: 20200509, end: 20200513
  2. REMDESIVIR. [Suspect]
     Active Substance: REMDESIVIR
     Indication: RESPIRATORY FAILURE
     Dates: start: 20200509, end: 20200513
  3. CONVALESCENT PLASMA FOR COVID-19 [Concomitant]
     Dates: start: 20200506, end: 20200507
  4. TOCILIZUMAB OR PLACEBO/COVACTA STUDY [Concomitant]
     Dates: start: 20200506, end: 20200506

REACTIONS (2)
  - Aspartate aminotransferase increased [None]
  - Alanine aminotransferase increased [None]

NARRATIVE: CASE EVENT DATE: 20200512
